FAERS Safety Report 26067799 (Version 1)
Quarter: 2025Q4

REPORT INFORMATION
  Report Type: Spontaneous
  Country: US (occurrence: US)
  Receive Date: 20251120
  Receipt Date: 20251120
  Transmission Date: 20260117
  Serious: No
  Sender: AKEBIA THERAPEUTICS
  Company Number: US-KERYX BIOPHARMACEUTICALS INC.-US-AKEB-25-000051

PATIENT
  Sex: Female

DRUGS (3)
  1. AURYXIA [Suspect]
     Active Substance: TETRAFERRIC TRICITRATE DECAHYDRATE
     Indication: Phosphorus metabolism disorder
     Dosage: 1 DOSAGE FORM, TID
     Route: 048
     Dates: start: 202111, end: 202412
  2. AURYXIA [Suspect]
     Active Substance: TETRAFERRIC TRICITRATE DECAHYDRATE
     Dosage: 2 DOSAGE FORM, TID
     Route: 048
     Dates: start: 202412
  3. AURYXIA [Suspect]
     Active Substance: TETRAFERRIC TRICITRATE DECAHYDRATE
     Dosage: 1.5 DOSAGE FORM, TID
     Route: 048

REACTIONS (2)
  - Abdominal discomfort [Unknown]
  - Off label use [Unknown]
